FAERS Safety Report 11912666 (Version 3)
Quarter: 2016Q1

REPORT INFORMATION
  Report Type: Report from Study
  Country: NL (occurrence: NL)
  Receive Date: 20160113
  Receipt Date: 20160203
  Transmission Date: 20160526
  Serious: Yes (Other)
  Sender: FDA-Public Use
  Company Number: NL-AMGEN-NLDSL2016000676

PATIENT
  Age: 73 Year
  Sex: Male

DRUGS (5)
  1. XGEVA [Suspect]
     Active Substance: DENOSUMAB
     Indication: PRODUCT USED FOR UNKNOWN INDICATION
     Dosage: 120 MG, Q4WK
     Route: 058
     Dates: start: 20151209
  2. TRAMADOL/PARACETAMOL [Concomitant]
     Active Substance: ACETAMINOPHEN\TRAMADOL
     Dosage: 7.5/325MG, TID
     Dates: start: 20151105, end: 20151116
  3. ACETYLSALICYLIC ACID [Concomitant]
     Active Substance: ASPIRIN
     Dosage: 80 MG, QD
     Dates: start: 20121123
  4. GLIMEPIRIDE SANDOZ [Concomitant]
     Active Substance: GLIMEPIRIDE
     Dosage: 1 MG, QD
     Dates: start: 20121123
  5. PRAVASTATIN [Concomitant]
     Active Substance: PRAVASTATIN\PRAVASTATIN SODIUM
     Dosage: 40 MG, QD
     Dates: start: 20121123

REACTIONS (8)
  - Spinal pain [Recovering/Resolving]
  - Fatigue [Unknown]
  - Weight fluctuation [Unknown]
  - Flank pain [Recovering/Resolving]
  - Vomiting [Unknown]
  - Nausea [Unknown]
  - Haematemesis [Unknown]
  - Prostate cancer metastatic [Unknown]

NARRATIVE: CASE EVENT DATE: 20151223
